FAERS Safety Report 9840345 (Version 2)
Quarter: 2014Q1

REPORT INFORMATION
  Report Type: Spontaneous
  Country: BR (occurrence: BR)
  Receive Date: 20140124
  Receipt Date: 20140129
  Transmission Date: 20141002
  Serious: Yes (Death, Hospitalization)
  Sender: FDA-Public Use
  Company Number: BR-ACTELION-A-CH2014-94045

PATIENT
  Age: 69 Year
  Sex: Female

DRUGS (10)
  1. TRACLEER [Suspect]
     Indication: PULMONARY ARTERIAL HYPERTENSION
     Dosage: 125 MG, BID
     Route: 048
     Dates: start: 201104, end: 20140121
  2. WARFARIN [Concomitant]
  3. LEVOTHYROXINE [Concomitant]
  4. FUROSEMIDE [Concomitant]
  5. OMEPRAZOLE [Concomitant]
  6. SILDENAFIL [Concomitant]
  7. PROPRANOLOL [Concomitant]
  8. OXYGEN [Concomitant]
  9. AMITRIPTYLINE [Concomitant]
  10. SPIRONOLACTONE [Concomitant]

REACTIONS (2)
  - Pneumonia [Fatal]
  - Femur fracture [Unknown]
